FAERS Safety Report 10487388 (Version 2)
Quarter: 2014Q4

REPORT INFORMATION
  Report Type: Spontaneous
  Country: BR (occurrence: BR)
  Receive Date: 20141001
  Receipt Date: 20141118
  Transmission Date: 20150528
  Serious: Yes (Other)
  Sender: FDA-Public Use
  Company Number: BR-PFIZER INC-2014266024

PATIENT
  Age: 59 Year
  Sex: Female
  Weight: 51 kg

DRUGS (3)
  1. CALCIUM CITRATE [Concomitant]
     Active Substance: CALCIUM CITRATE
     Indication: OSTEOPENIA
     Dosage: 500 MG (1 TABLET), DAILY
     Dates: start: 2006
  2. CHOLECALCIFEROL [Concomitant]
     Active Substance: CHOLECALCIFEROL
     Indication: OSTEOPENIA
     Dosage: 40000 MG (1 TABLET), WEEKLY
     Dates: start: 2006
  3. XALATAN [Suspect]
     Active Substance: LATANOPROST
     Indication: GLAUCOMA
     Dosage: 1 GTT EACH EYE, 1X/DAY (AT NIGHT)
     Route: 047
     Dates: start: 20140630, end: 20140903

REACTIONS (1)
  - Hordeolum [Recovered/Resolved]

NARRATIVE: CASE EVENT DATE: 20140915
